FAERS Safety Report 13929166 (Version 1)
Quarter: 2017Q3

REPORT INFORMATION
  Report Type: Spontaneous
  Country: US (occurrence: US)
  Receive Date: 20170901
  Receipt Date: 20170901
  Transmission Date: 20171127
  Serious: Yes (Death)
  Sender: FDA-Public Use
  Company Number: None

PATIENT
  Age: 29 Year
  Sex: Male

DRUGS (1)
  1. OPANA [Suspect]
     Active Substance: OXYMORPHONE HYDROCHLORIDE
     Indication: BACK PAIN

REACTIONS (6)
  - Agitation [None]
  - Suicidal ideation [None]
  - Personality change [None]
  - Refusal of treatment by patient [None]
  - Fall [None]
  - Decreased activity [None]

NARRATIVE: CASE EVENT DATE: 20150420
